FAERS Safety Report 24219004 (Version 1)
Quarter: 2024Q3

REPORT INFORMATION
  Report Type: Spontaneous
  Country: US (occurrence: None)
  Receive Date: 20240816
  Receipt Date: 20240816
  Transmission Date: 20241017
  Serious: Yes (Hospitalization)
  Sender: Public
  Company Number: None

PATIENT
  Sex: Male

DRUGS (11)
  1. MYCOPHENOLIC ACID [Suspect]
     Active Substance: MYCOPHENOLIC ACID
     Indication: Renal transplant
     Dosage: OTHER FREQUENCY : EVERY MORNING AND EVERY EVENING;?
     Route: 048
     Dates: start: 20170117
  2. ALLOPURINOL [Concomitant]
     Active Substance: ALLOPURINOL
  3. CELLCEPT [Concomitant]
     Active Substance: MYCOPHENOLATE MOFETIL
  4. ELIQUIS [Concomitant]
     Active Substance: APIXABAN
  5. IRON [Concomitant]
     Active Substance: IRON
  6. LATANOPROST [Concomitant]
     Active Substance: LATANOPROST
  7. LOTENSIN [Concomitant]
     Active Substance: BENAZEPRIL HYDROCHLORIDE
  8. MELATONIN [Concomitant]
     Active Substance: MELATONIN
  9. PRAVACHOL [Concomitant]
     Active Substance: PRAVASTATIN SODIUM
  10. PROGRAF [Concomitant]
     Active Substance: TACROLIMUS
  11. TACROLIMUS [Concomitant]
     Active Substance: TACROLIMUS

REACTIONS (1)
  - Hospitalisation [None]
